FAERS Safety Report 8681165 (Version 3)
Quarter: 2013Q4

REPORT INFORMATION
  Report Type: Spontaneous
  Country: BE (occurrence: BE)
  Receive Date: 20120725
  Receipt Date: 20131031
  Transmission Date: 20140711
  Serious: Yes (Hospitalization, Other)
  Sender: FDA-Public Use
  Company Number: BE-MSD-1207BEL006801

PATIENT
  Age: 85 Year
  Sex: Female
  Weight: 61.5 kg

DRUGS (7)
  1. REMERGON [Suspect]
     Indication: DEPRESSION
     Dosage: 30 MG, UNK
  2. VENLAFAXINE HYDROCHLORIDE [Interacting]
     Indication: DEPRESSION
     Dosage: 150 MG, UNK
  3. BISOPROLOL [Concomitant]
     Dosage: 2.5 MG, UNK
  4. LEVOTHYROXINE SODIUM [Concomitant]
     Dosage: 125 MICROGRAM, UNK
  5. PANTOPRAZOLE [Concomitant]
     Dosage: 20 MG, UNK
  6. SODIUM PICOSULFATE [Concomitant]
     Dosage: DROPS
  7. CALCIUM (UNSPECIFIED) (+) VITAMIN D (UNSPECIFIED) [Concomitant]
     Dosage: CALCIUM/VITAMIN D3 SUPPLEMENTS

REACTIONS (6)
  - Hypertonia [Unknown]
  - Metabolic encephalopathy [Recovered/Resolved]
  - Urinary tract infection [Recovered/Resolved]
  - Hyperreflexia [Unknown]
  - Serotonin syndrome [Recovered/Resolved]
  - Restlessness [Unknown]
